FAERS Safety Report 9226015 (Version 1)
Quarter: 2013Q2

REPORT INFORMATION
  Report Type: Other
  Country: DE (occurrence: DE)
  Receive Date: 20130411
  Receipt Date: 20130411
  Transmission Date: 20140414
  Serious: Yes (Congenital Anomaly, Other)
  Sender: FDA-Public Use
  Company Number: DE-NICOBRDEVP-2013-05758

PATIENT
  Sex: Male
  Weight: 2 kg

DRUGS (8)
  1. LAMOTRIGINE (UNKNOWN) [Suspect]
     Indication: EPILEPSY
     Dosage: 400 MG, DAILY
     Route: 064
     Dates: start: 20110916, end: 20120425
  2. CELESTAN                           /00008501/ [Concomitant]
     Indication: MATERNAL THERAPY TO ENHANCE FOETAL LUNG MATURITY
     Dosage: UNK
     Route: 064
     Dates: start: 20120228, end: 20120229
  3. UTROGEST [Concomitant]
     Indication: SHORTENED CERVIX
     Dosage: 200 MG, DAILY
     Route: 064
     Dates: start: 20120229, end: 20120320
  4. IBUPROFEN [Concomitant]
     Indication: PAIN
     Dosage: UNKNOWN
     Route: 065
  5. FRAGMIN P [Concomitant]
     Indication: THROMBOSIS PROPHYLAXIS
     Dosage: UNKNOWN
     Route: 064
     Dates: start: 20120229, end: 20120320
  6. NIFEHEXAL [Concomitant]
     Indication: TOCOLYSIS
     Dosage: UNK
     Route: 064
     Dates: end: 20120320
  7. TRACTOCILE [Concomitant]
     Indication: TOCOLYSIS
     Dosage: UNK
     Route: 064
     Dates: start: 20120229, end: 20120229
  8. FOLIC ACID [Concomitant]
     Indication: PROPHYLAXIS
     Dosage: UNK
     Route: 065

REACTIONS (5)
  - Transposition of the great vessels [Not Recovered/Not Resolved]
  - Patent ductus arteriosus [Not Recovered/Not Resolved]
  - Atrial septal defect [Not Recovered/Not Resolved]
  - Foetal exposure during pregnancy [Not Recovered/Not Resolved]
  - Premature baby [Not Recovered/Not Resolved]
